FAERS Safety Report 4600567-4 (Version None)
Quarter: 2005Q1

REPORT INFORMATION
  Report Type: 
  Country: None (occurrence: None)
  Receive Date: 20050304
  Receipt Date: 20050216
  Transmission Date: 20050727
  Serious: Yes (Hospitalization)
  Sender: FDA-Public Use
  Company Number: 212746

PATIENT
  Age: 66 Year
  Sex: Female

DRUGS (7)
  1. VINFLUNINE (VINFLUNINE) [Suspect]
     Indication: BREAST CANCER METASTATIC
     Dosage: 649.5 MG, Q3W, INTRAVENOUS
     Route: 042
     Dates: start: 20050127
  2. HERCEPTIN [Suspect]
     Indication: BREAST CANCER METASTATIC
     Dosage: 404 MG, SINGLE, INTRAVENOUS
     Route: 042
     Dates: start: 20050127, end: 20050127
  3. ALLOPURINOL [Concomitant]
  4. ATENOLOL [Concomitant]
  5. AMLODIPINE (AMLODIPINE BESILATE) [Concomitant]
  6. FUROSEMIDE [Concomitant]
  7. IMODIUM [Concomitant]

REACTIONS (1)
  - FEBRILE NEUTROPENIA [None]
